FAERS Safety Report 8123669-7 (Version None)
Quarter: 2012Q1

REPORT INFORMATION
  Report Type: 
  Country: None (occurrence: None)
  Receive Date: 20120208
  Receipt Date: 20120206
  Transmission Date: 20120608
  Serious: Yes (Hospitalization, Disabling)
  Sender: FDA-Public Use
  Company Number: PHEH2011US011426

PATIENT
  Sex: Female

DRUGS (9)
  1. EXJADE [Suspect]
     Indication: MYELODYSPLASTIC SYNDROME
     Dosage: 750 MG, DAILY
     Route: 048
     Dates: start: 20100521
  2. ARANESP [Concomitant]
  3. CLONIDINE [Concomitant]
  4. CALCITRIOL [Concomitant]
  5. EXTRA STRENGTH TYLENOL [Concomitant]
  6. AMLODIPINE BESYLATE [Concomitant]
  7. CALCIUM [Concomitant]
  8. ATENOLOL [Concomitant]
  9. BLOOD TRANSFUSION, AUXILIARY PRODUCTS [Concomitant]
     Dosage: UNK UKN, PRN

REACTIONS (2)
  - PERICARDIAL EFFUSION [None]
  - PNEUMONIA [None]
